FAERS Safety Report 22141401 (Version 1)
Quarter: 2023Q1

REPORT INFORMATION
  Report Type: Spontaneous
  Country: US (occurrence: None)
  Receive Date: 20230324
  Receipt Date: 20230324
  Transmission Date: 20230417
  Serious: Yes (Other)
  Sender: FDA-Public Use
  Company Number: None

PATIENT
  Sex: Female

DRUGS (5)
  1. HUMIRA [Suspect]
     Active Substance: ADALIMUMAB
     Indication: Psoriatic arthropathy
     Dosage: 40 MG/0.8ML SUBCUTANEOUS??INJECT 40 MG UNDER THE SKIN (SUBCUTANEOUS INJECTION) EVERY 14 DAYS
     Route: 058
     Dates: start: 20210910
  2. ATORVASTATIN [Concomitant]
     Active Substance: ATORVASTATIN
  3. FLUOXETINE [Concomitant]
     Active Substance: FLUOXETINE HYDROCHLORIDE
  4. GLIPIZIDE ER [Concomitant]
     Active Substance: GLIPIZIDE
  5. SODIUM FLUOR CRE [Concomitant]

REACTIONS (5)
  - Arthralgia [None]
  - Joint swelling [None]
  - COVID-19 [None]
  - Therapy interrupted [None]
  - Psoriatic arthropathy [None]

NARRATIVE: CASE EVENT DATE: 20230101
